FAERS Safety Report 5082123-X (Version None)
Quarter: 2006Q3

REPORT INFORMATION
  Report Type: 
  Country: None (occurrence: None)
  Receive Date: 20060817
  Receipt Date: 20060714
  Transmission Date: 20061208
  Serious: Yes (Disabling)
  Sender: FDA-Public Use
  Company Number: GBWYE203117JUL06

PATIENT
  Sex: Female
  Weight: 57.3 kg

DRUGS (8)
  1. ENBREL [Suspect]
     Indication: JUVENILE ARTHRITIS
     Route: 058
     Dates: start: 20050501, end: 20060714
  2. ENBREL [Suspect]
     Route: 058
     Dates: end: 20060714
  3. PREDNISOLONE [Concomitant]
     Route: 048
  4. METHOTREXATE [Concomitant]
     Route: 048
  5. MELOXICAM [Concomitant]
     Route: 048
  6. ADCAL D3 [Concomitant]
     Dosage: ONE TABLET, FREQUENCY NOT SPECIFIED
     Route: 048
  7. FERROUS SULFATE TAB [Concomitant]
     Dosage: ONE DOSE, FREQUENCY UNSPECIFIED
     Route: 048
  8. RANITIDINE [Concomitant]
     Route: 048

REACTIONS (1)
  - UVEITIS [None]
